FAERS Safety Report 20837969 (Version 2)
Quarter: 2022Q4

REPORT INFORMATION
  Report Type: Spontaneous
  Country: US (occurrence: US)
  Receive Date: 20220517
  Receipt Date: 20221005
  Transmission Date: 20230113
  Serious: Yes (Other)
  Sender: FDA-Public Use
  Company Number: US-HORIZON THERAPEUTICS-HZN-2022-001769

PATIENT

DRUGS (1)
  1. TEPEZZA [Suspect]
     Active Substance: TEPROTUMUMAB-TRBW
     Indication: Product used for unknown indication
     Dosage: UNK
     Route: 065

REACTIONS (7)
  - Type 2 diabetes mellitus [Unknown]
  - Abdominal pain [Unknown]
  - Adverse drug reaction [Unknown]
  - Drug ineffective [Unknown]
  - Alopecia [Unknown]
  - Visual impairment [Unknown]
  - Condition aggravated [Unknown]
